FAERS Safety Report 8122169-8 (Version None)
Quarter: 2011Q4

REPORT INFORMATION
  Report Type: 
  Country: None (occurrence: None)
  Receive Date: 20111227
  Receipt Date: 20110930
  Transmission Date: 20120403
  Serious: No
  Sender: FDA-Public Use
  Company Number: PHHY2011US46955

PATIENT
  Age: 51 Year
  Sex: Female
  Weight: 54.4 kg

DRUGS (14)
  1. VITAMIN D [Concomitant]
  2. NASONEX [Concomitant]
  3. ACETAMINOPHEN [Concomitant]
  4. XOPENEX [Concomitant]
  5. OMEGA-3 (OMEGA-3 TRIGLYCERIDES) [Concomitant]
  6. CETRIZINE (CETIRIZINE HYDROCHLORIDE) [Concomitant]
  7. LUTEIN (XANTOFYL) [Concomitant]
  8. CALCIUM W/MAGNESIUM/VITAMIN D (CALCIUM, MAGNESIUM, VITAMIN D NOS) [Concomitant]
  9. GILENYA [Suspect]
     Indication: MULTIPLE SCLEROSIS
     Dosage: 0.5 MG, QD, ORAL
     Route: 048
     Dates: start: 20110523
  10. BUPROPION HCL [Concomitant]
  11. ZOLOFT [Concomitant]
  12. WELLBUTRIN [Concomitant]
  13. GLUCOSAMINE (GLUCOSAMINE) [Concomitant]
  14. BILBERRY (VACCINIUM MYRTILLUS) [Concomitant]

REACTIONS (4)
  - DIZZINESS [None]
  - ASPARTATE AMINOTRANSFERASE INCREASED [None]
  - CHALAZION [None]
  - ALANINE AMINOTRANSFERASE INCREASED [None]
